FAERS Safety Report 7763462-8 (Version None)
Quarter: 2011Q3

REPORT INFORMATION
  Report Type: 
  Country: None (occurrence: None)
  Receive Date: 20110920
  Receipt Date: 20110912
  Transmission Date: 20111222
  Serious: Yes (Hospitalization)
  Sender: FDA-Public Use
  Company Number: JP-PFIZER INC-2011215307

PATIENT
  Age: 85 Year
  Sex: Female

DRUGS (7)
  1. ARICEPT [Suspect]
     Indication: DEMENTIA ALZHEIMER'S TYPE
     Dosage: 3 MG, 1X/DAY
     Route: 048
     Dates: start: 20110602, end: 20110615
  2. CANDESARTAN CILEXETIL [Concomitant]
     Dosage: 2 MG, 1X/DAY
     Route: 048
  3. AROMASIN [Suspect]
     Dosage: 25 MG, 1X/DAY
     Route: 048
  4. DEPAS [Concomitant]
     Dosage: 1 MG, 1X/DAY
     Route: 048
     Dates: end: 20110908
  5. ARICEPT [Suspect]
     Dosage: 10 MG, 1X/DAY
     Route: 048
     Dates: start: 20110804, end: 20110908
  6. ARICEPT [Suspect]
     Dosage: 5 MG, 1X/DAY
     Route: 048
     Dates: start: 20110616, end: 20110803
  7. LANSOPRAZOLE [Suspect]
     Dosage: 15 MG, 1X/DAY
     Route: 048
     Dates: end: 20110908

REACTIONS (2)
  - TREMOR [None]
  - EPILEPSY [None]
